FAERS Safety Report 4347237-8 (Version None)
Quarter: 2004Q2

REPORT INFORMATION
  Report Type: 
  Country: None (occurrence: None)
  Receive Date: 20040426
  Receipt Date: 20040416
  Transmission Date: 20050107
  Serious: Yes (Other)
  Sender: FDA-Public Use
  Company Number: IT-MERCK-0404ITA00019

PATIENT
  Age: 39 Year
  Sex: Male

DRUGS (2)
  1. VIOXX [Suspect]
     Indication: RHEUMATOID ARTHRITIS
     Route: 048
     Dates: start: 20040302, end: 20040407
  2. SULFASALAZINE [Concomitant]
     Route: 048

REACTIONS (2)
  - MYALGIA [None]
  - RHABDOMYOLYSIS [None]
